FAERS Safety Report 13172048 (Version 1)
Quarter: 2017Q1

REPORT INFORMATION
  Report Type: Spontaneous
  Country: GB (occurrence: GB)
  Receive Date: 20170201
  Receipt Date: 20170201
  Transmission Date: 20170428
  Serious: Yes (Hospitalization)
  Sender: FDA-Public Use
  Company Number: GB-AUROBINDO-AUR-APL-2017-28247

PATIENT
  Age: 39 Year
  Sex: Female

DRUGS (1)
  1. CITALOPRAM [Suspect]
     Active Substance: CITALOPRAM HYDROBROMIDE
     Indication: DEPRESSION
     Route: 065

REACTIONS (13)
  - Diarrhoea [Unknown]
  - Peripheral sensory neuropathy [Unknown]
  - Paraesthesia oral [Unknown]
  - Mobility decreased [Unknown]
  - Vomiting [Unknown]
  - Hypokalaemia [Unknown]
  - Condition aggravated [Unknown]
  - Hyponatraemia [Unknown]
  - Magnesium deficiency [Recovered/Resolved]
  - Osmotic demyelination syndrome [Unknown]
  - Paraesthesia [Unknown]
  - Folate deficiency [Recovered/Resolved]
  - Nystagmus [Unknown]
